FAERS Safety Report 14506571 (Version 1)
Quarter: 2018Q1

REPORT INFORMATION
  Report Type: Spontaneous
  Country: US (occurrence: US)
  Receive Date: 20180208
  Receipt Date: 20180208
  Transmission Date: 20180509
  Serious: Yes (Hospitalization)
  Sender: FDA-Public Use
  Company Number: US-SA-2018SA030276

PATIENT
  Age: 47 Year
  Sex: Female

DRUGS (3)
  1. SOLIQUA 100/33 [Suspect]
     Active Substance: INSULIN GLARGINE\LIXISENATIDE
     Route: 058
  2. INVOKANA [Concomitant]
     Active Substance: CANAGLIFLOZIN
     Route: 065
  3. SOLOSTAR [Suspect]
     Active Substance: DEVICE

REACTIONS (1)
  - Diabetic ketoacidosis [Unknown]
